FAERS Safety Report 5842367-3 (Version None)
Quarter: 2008Q3

REPORT INFORMATION
  Report Type: 
  Country: None (occurrence: None)
  Receive Date: 20080812
  Receipt Date: 20080808
  Transmission Date: 20090109
  Serious: Yes (Hospitalization, Other)
  Sender: FDA-Public Use
  Company Number: JP-BOEHRINGER INGELHEIM GMBH, GERMANY-2008-BP-09729NB

PATIENT
  Sex: Male
  Weight: 61 kg

DRUGS (7)
  1. SPIRIVA [Suspect]
     Indication: CHRONIC OBSTRUCTIVE PULMONARY DISEASE
     Route: 055
     Dates: start: 20080425, end: 20080609
  2. SEREVENT [Suspect]
     Indication: CHRONIC OBSTRUCTIVE PULMONARY DISEASE
     Route: 055
     Dates: start: 20080528, end: 20080601
  3. FLUTIDE [Suspect]
     Indication: CHRONIC OBSTRUCTIVE PULMONARY DISEASE
     Route: 055
     Dates: start: 20080604, end: 20080623
  4. FLUITRAN [Suspect]
     Indication: HYPERTENSION
     Route: 048
     Dates: start: 20080425, end: 20080513
  5. SEREVENT [Concomitant]
     Indication: RESPIRATORY DISORDER
     Route: 055
     Dates: start: 20080528, end: 20080601
  6. FLUTIDE [Concomitant]
     Indication: RESPIRATORY DISORDER
     Route: 055
     Dates: start: 20080604, end: 20080623
  7. FLUITRAN [Concomitant]
     Route: 048
     Dates: start: 20080425, end: 20080513

REACTIONS (4)
  - ALLERGIC GRANULOMATOUS ANGIITIS [None]
  - EOSINOPHIL COUNT INCREASED [None]
  - LIVER DISORDER [None]
  - WHITE BLOOD CELL COUNT INCREASED [None]
